FAERS Safety Report 4514187-3 (Version None)
Quarter: 2004Q4

REPORT INFORMATION
  Report Type: 
  Country: None (occurrence: None)
  Receive Date: 20041129
  Receipt Date: 20041123
  Transmission Date: 20050328
  Serious: Yes (Death)
  Sender: FDA-Public Use
  Company Number: 04-11-1634

PATIENT
  Age: 50 Year
  Sex: Female

DRUGS (1)
  1. CLOZAPINE [Suspect]
     Dosage: 625 MG QD ORAL
     Route: 048
     Dates: start: 20020901, end: 20041101

REACTIONS (2)
  - CARDIAC DISORDER [None]
  - EMPHYSEMA [None]
